FAERS Safety Report 7869326 (Version 3)
Quarter: 2012Q4

REPORT INFORMATION
  Report Type: 
  Country: CO (occurrence: CO)
  Receive Date: 20110324
  Receipt Date: 20121105
  Transmission Date: 20130627
  Serious: Yes (Hospitalization, Other)
  Sender: FDA-Public Use
  Company Number: PHHO2011CO03884

PATIENT
  Age: 65 Year
  Sex: Female
  Weight: 62.2 kg

DRUGS (18)
  1. BLINDED ALISKIREN [Suspect]
     Indication: CARDIAC FAILURE
     Dosage: Code not broken
     Route: 048
     Dates: start: 20101124, end: 20110317
  2. BLINDED ENALAPRIL [Suspect]
     Indication: CARDIAC FAILURE
     Dosage: Code not broken
     Route: 048
     Dates: start: 20101124, end: 20110317
  3. BLINDED NO TREATMENT RECEIVED [Suspect]
     Indication: CARDIAC FAILURE
     Dosage: Code not broken
     Route: 048
     Dates: start: 20101124, end: 20110317
  4. BLINDED ALISKIREN [Suspect]
     Dosage: Code not broken
     Route: 048
     Dates: end: 20120215
  5. BLINDED ENALAPRIL [Suspect]
     Dosage: Code not broken
     Route: 048
     Dates: end: 20120215
  6. BLINDED NO TREATMENT RECEIVED [Suspect]
     Dosage: Code not broken
     Route: 048
     Dates: end: 20120215
  7. COMPARATOR ENALAPRIL [Suspect]
     Indication: CARDIAC FAILURE
     Dosage: UNK
  8. ALISKIREN [Suspect]
     Indication: CARDIAC FAILURE
     Dosage: UNK
  9. METOPROLOL [Concomitant]
     Indication: CARDIAC FAILURE
     Dosage: 100 mg, BID
     Dates: start: 20080610
  10. METOPROLOL [Concomitant]
     Dosage: 50 mg, QD
  11. FURSEMIDA [Concomitant]
     Indication: CARDIAC FAILURE
     Dosage: 40 mg, BID
     Dates: start: 20080610
  12. DIGOXIN [Concomitant]
     Indication: CARDIAC FAILURE
     Dosage: 0.1 mg, QD
     Dates: start: 20101215
  13. ASA [Concomitant]
     Indication: CORONARY ARTERY DISEASE
     Dosage: 100 mg, QD
     Dates: start: 20100610
  14. LOVASTATIN [Concomitant]
     Indication: DYSLIPIDAEMIA
     Dosage: 40 mg, QD
     Dates: start: 20080610
  15. ESPIRONOLACTONA [Concomitant]
     Indication: CARDIAC FAILURE
     Dosage: 25 mg, UNK
     Dates: start: 20081110
  16. ESPIRONOLACTONA [Concomitant]
     Dosage: 25 mg, QD
  17. ENALAPRIL [Concomitant]
     Indication: CARDIAC FAILURE
     Dosage: 10 mg, BID
     Dates: start: 200806
  18. ENALAPRIL [Concomitant]
     Dosage: 20 mg, BID

REACTIONS (2)
  - Thrombocytopenia [Not Recovered/Not Resolved]
  - Concomitant disease progression [Not Recovered/Not Resolved]
